FAERS Safety Report 12787322 (Version 1)
Quarter: 2016Q3

REPORT INFORMATION
  Report Type: Report from Study
  Country: US (occurrence: US)
  Receive Date: 20160927
  Receipt Date: 20160927
  Transmission Date: 20161109
  Serious: Yes (Other)
  Sender: FDA-Public Use
  Company Number: US-ROCHE-1833751

PATIENT
  Age: 67 Year
  Sex: Female

DRUGS (3)
  1. BEVACIZUMAB [Suspect]
     Active Substance: BEVACIZUMAB
     Indication: PAPILLARY SEROUS ENDOMETRIAL CARCINOMA
     Route: 042
     Dates: start: 20100430, end: 20100924
  2. CARBOPLATIN. [Suspect]
     Active Substance: CARBOPLATIN
     Indication: PAPILLARY SEROUS ENDOMETRIAL CARCINOMA
     Dosage: OVER 30 MINUTES
     Route: 042
  3. PACLITAXEL. [Suspect]
     Active Substance: PACLITAXEL
     Indication: PAPILLARY SEROUS ENDOMETRIAL CARCINOMA
     Dosage: OVER 3 HOURS
     Route: 042

REACTIONS (8)
  - Supraventricular tachycardia [Unknown]
  - Pelvic pain [Unknown]
  - Neutrophil count decreased [Unknown]
  - Anaemia [Unknown]
  - Febrile neutropenia [Unknown]
  - Platelet count decreased [Unknown]
  - Ventricular arrhythmia [Unknown]
  - White blood cell count decreased [Unknown]
